FAERS Safety Report 7797909 (Version 6)
Quarter: 2012Q4

REPORT INFORMATION
  Report Type: 
  Country: JP (occurrence: JP)
  Receive Date: 20110203
  Receipt Date: 20121228
  Transmission Date: 20130627
  Serious: Yes (Life-Threatening, Hospitalization)
  Sender: FDA-Public Use
  Company Number: JP-B.I. PHARMACEUTICALS,INC./RIDGEFIELD-2011-DE-00732GD

PATIENT
  Sex: Female
  Weight: 41 kg

DRUGS (14)
  1. MOBIC [Suspect]
     Indication: RHEUMATOID ARTHRITIS
     Route: 048
     Dates: start: 200611
  2. NEORAL [Concomitant]
     Indication: MYELODYSPLASTIC SYNDROME
     Dosage: 100 mg
  3. RIMATIL [Concomitant]
     Indication: RHEUMATOID ARTHRITIS
     Dosage: 4DF
  4. PYDOXAL [Concomitant]
     Dosage: 8DF
  5. NEUROVITAN /OCTOTIAMINE B2_B6_B12 COMBINED DRUG [Concomitant]
  6. NEUROVITAN /OCTOTIAMINE B2_B6_B12 COMBINED DRUG [Concomitant]
  7. FOLIAMIN [Concomitant]
     Dosage: 5 mg
  8. NORVASC [Concomitant]
     Indication: HYPERTENSION
     Dosage: 5 mg
  9. MUCOSTA [Concomitant]
     Dosage: 200 mg
  10. MAGNESIUM OXIDE [Concomitant]
  11. PURSENNID [Concomitant]
  12. CALONAL [Concomitant]
  13. DORMICUM [Concomitant]
     Dates: start: 20080731
  14. SOSEGON [Concomitant]
     Dates: start: 20080731, end: 20080731

REACTIONS (4)
  - Ileal stenosis [Not Recovered/Not Resolved]
  - Small intestine ulcer [Unknown]
  - Haematochezia [Unknown]
  - Diverticulum [Unknown]
